FAERS Safety Report 7719584-0 (Version None)
Quarter: 2011Q3

REPORT INFORMATION
  Report Type: 
  Country: None (occurrence: None)
  Receive Date: 20110830
  Receipt Date: 20110825
  Transmission Date: 20111222
  Serious: Yes (Death, Other)
  Sender: FDA-Public Use
  Company Number: GB-ABBOTT-11P-167-0840835-00

PATIENT
  Sex: Female

DRUGS (1)
  1. HUMIRA [Suspect]
     Indication: RHEUMATOID ARTHRITIS
     Route: 058
     Dates: start: 20070705

REACTIONS (9)
  - LOWER RESPIRATORY TRACT INFECTION [None]
  - DYSARTHRIA [None]
  - LUNG CANCER METASTATIC [None]
  - PANCREATIC CYST [None]
  - CYANOSIS [None]
  - METASTASES TO CENTRAL NERVOUS SYSTEM [None]
  - DYSPNOEA [None]
  - HEMIPARESIS [None]
  - CONFUSIONAL STATE [None]
